FAERS Safety Report 8424448-3 (Version None)
Quarter: 2012Q2

REPORT INFORMATION
  Report Type: 
  Country: None (occurrence: None)
  Receive Date: 20120610
  Receipt Date: 20120528
  Transmission Date: 20120825
  Serious: Yes (Other)
  Sender: FDA-Public Use
  Company Number: GB-MYLANLABS-2012S1011211

PATIENT
  Age: 81 Year
  Sex: Female

DRUGS (3)
  1. PREDNISOLONE [Suspect]
     Dosage: 5MG DAILY
     Route: 048
     Dates: start: 19930101
  2. AZATHIOPRINE [Suspect]
     Indication: NODULAR VASCULITIS
     Route: 065
  3. PREDNISOLONE [Suspect]
     Indication: NODULAR VASCULITIS
     Dosage: 10MG DAILY
     Route: 048
     Dates: start: 19930101

REACTIONS (4)
  - MYALGIA [None]
  - OEDEMA PERIPHERAL [None]
  - MYCOBACTERIUM CHELONAE INFECTION [None]
  - IMMUNOSUPPRESSION [None]
